FAERS Safety Report 5813739-8 (Version None)
Quarter: 2008Q3

REPORT INFORMATION
  Report Type: 
  Country: None (occurrence: None)
  Receive Date: 20080717
  Receipt Date: 20080709
  Transmission Date: 20090109
  Serious: Yes (Death)
  Sender: FDA-Public Use
  Company Number: BR-AVENTIS-200816553GDDC

PATIENT
  Age: 62 Year
  Sex: Male
  Weight: 68 kg

DRUGS (2)
  1. DOCETAXEL [Suspect]
     Dates: start: 20080101, end: 20080301
  2. RADIOTHERAPY [Suspect]
     Dates: start: 20071101, end: 20071201

REACTIONS (1)
  - PNEUMONITIS [None]
